FAERS Safety Report 6434393-0 (Version None)
Quarter: 2009Q4

REPORT INFORMATION
  Report Type: 
  Country: None (occurrence: None)
  Receive Date: 20091110
  Receipt Date: 20081007
  Transmission Date: 20100525
  Serious: No
  Sender: FDA-Public Use
  Company Number: US-ASTRAZENECA-2009UW15375

PATIENT
  Age: 65 Year
  Sex: Female

DRUGS (3)
  1. PRILOSEC OTC [Suspect]
     Indication: GASTROOESOPHAGEAL REFLUX DISEASE
     Dosage: UNK DOSE, 1 /DAY
     Route: 048
  2. PRILOSEC [Suspect]
     Route: 048
  3. ZYRTEC [Suspect]
     Dosage: UNK DOSE, 1 /DAY
     Route: 048

REACTIONS (2)
  - SOMNOLENCE [None]
  - WRONG DRUG ADMINISTERED [None]
